FAERS Safety Report 7495046-3 (Version None)
Quarter: 2011Q2

REPORT INFORMATION
  Report Type: 
  Country: None (occurrence: None)
  Receive Date: 20110520
  Receipt Date: 20110511
  Transmission Date: 20111010
  Serious: Yes (Life-Threatening)
  Sender: FDA-Public Use
  Company Number: JP-MPIJNJ-2010-06152

PATIENT

DRUGS (7)
  1. ZYLORIC                            /00003301/ [Concomitant]
     Indication: HYPERURICAEMIA
     Dosage: 100 MG, UNK
     Route: 048
     Dates: start: 20100121, end: 20100505
  2. VELCADE [Suspect]
     Indication: MULTIPLE MYELOMA
     Dosage: 1.8 MG, UNK
     Route: 042
     Dates: start: 20100501, end: 20100504
  3. ITRACONAZOLE [Concomitant]
     Dosage: 100 MG, UNK
     Route: 048
     Dates: start: 20100121, end: 20100505
  4. CIPROXAN                           /00697202/ [Concomitant]
     Dosage: 600 MG, UNK
     Route: 048
     Dates: start: 20100501, end: 20100505
  5. DEXAMETHASONE [Suspect]
     Indication: MULTIPLE MYELOMA
     Dosage: 20 MG, UNK
     Route: 042
     Dates: start: 20100501, end: 20100504
  6. SULFAMETHOXAZOLE [Concomitant]
     Dosage: UNK
     Route: 048
     Dates: start: 20100121, end: 20100505
  7. FAMOTIDINE [Suspect]
     Indication: ABDOMINAL PAIN UPPER
     Dosage: 20 MG, UNK
     Route: 048
     Dates: start: 20100121, end: 20100505

REACTIONS (1)
  - TUMOUR LYSIS SYNDROME [None]
